FAERS Safety Report 6700390-0 (Version None)
Quarter: 2010Q2

REPORT INFORMATION
  Report Type: 
  Country: None (occurrence: None)
  Receive Date: 20100428
  Receipt Date: 20100415
  Transmission Date: 20101027
  Serious: Yes (Other)
  Sender: FDA-Public Use
  Company Number: JP-ROCHE-698588

PATIENT

DRUGS (20)
  1. TOCILIZUMAB [Suspect]
     Indication: RHEUMATOID ARTHRITIS
     Route: 064
     Dates: start: 20081105, end: 20081105
  2. TOCILIZUMAB [Suspect]
     Route: 064
     Dates: start: 20081125, end: 20081125
  3. TOCILIZUMAB [Suspect]
     Route: 064
     Dates: start: 20081203, end: 20081203
  4. TOCILIZUMAB [Suspect]
     Route: 064
     Dates: start: 20090107, end: 20090107
  5. TOCILIZUMAB [Suspect]
     Route: 064
     Dates: start: 20090204, end: 20090204
  6. TOCILIZUMAB [Suspect]
     Route: 064
     Dates: start: 20090311, end: 20090311
  7. ISONIAZID [Suspect]
     Indication: DRUG USE FOR UNKNOWN INDICATION
     Route: 064
     Dates: start: 20081008, end: 20090407
  8. MEDROL [Concomitant]
     Dates: end: 20080918
  9. MEDROL [Concomitant]
     Dates: end: 20080918
  10. MEDROL [Concomitant]
     Dates: start: 20080919, end: 20081104
  11. MEDROL [Concomitant]
     Dates: start: 20081105, end: 20081202
  12. MEDROL [Concomitant]
     Dates: start: 20081105, end: 20081202
  13. MEDROL [Concomitant]
     Dates: start: 20081203
  14. PYDOXAL [Concomitant]
     Dates: end: 20090407
  15. ALFAROL [Concomitant]
     Dates: end: 20090203
  16. ASPARA-CA [Concomitant]
  17. TAKEPRON [Concomitant]
     Dates: end: 20090203
  18. ULCERLMIN [Concomitant]
     Route: 064
     Dates: start: 20090204
  19. DEPAS [Concomitant]
     Route: 064
     Dates: start: 20090311, end: 20090311
  20. CALONAL [Concomitant]
     Route: 064
     Dates: start: 20090408

REACTIONS (1)
  - DEATH NEONATAL [None]
